FAERS Safety Report 9358913 (Version 1)
Quarter: 2013Q2

REPORT INFORMATION
  Report Type: Spontaneous
  Country: PT (occurrence: PT)
  Receive Date: 20130620
  Receipt Date: 20130620
  Transmission Date: 20140414
  Serious: Yes (Death, Other)
  Sender: FDA-Public Use
  Company Number: PHHY2013PT062218

PATIENT
  Age: 78 Year
  Sex: Female

DRUGS (2)
  1. VALPROIC ACID [Suspect]
     Indication: MYOCLONUS
     Dosage: UNK UKN, UNK
  2. BENZODIAZEPINES [Suspect]
     Indication: MYOCLONUS
     Dosage: UNK UKN, UNK

REACTIONS (3)
  - Death [Fatal]
  - Muscle twitching [Unknown]
  - Drug ineffective [Unknown]
